FAERS Safety Report 5210039-4 (Version None)
Quarter: 2006Q4

REPORT INFORMATION
  Report Type: 
  Country: None (occurrence: None)
  Receive Date: 20061127
  Receipt Date: 20060330
  Transmission Date: 20070319
  Serious: Yes (Other)
  Sender: FDA-Public Use
  Company Number: 2006BH008188

PATIENT
  Age: 66 Year
  Sex: Female

DRUGS (6)
  1. DIANEAL [Suspect]
     Indication: DIALYSIS
     Dosage: IP
     Route: 033
  2. FERRIS FURMENTE [Concomitant]
  3. HECTORAL [Concomitant]
  4. RENAGEL [Concomitant]
  5. PERI-COLACE [Concomitant]
  6. DAILY VITAMINS [Concomitant]

REACTIONS (2)
  - PERITONITIS BACTERIAL [None]
  - STAPHYLOCOCCAL INFECTION [None]
